FAERS Safety Report 6442962-7 (Version None)
Quarter: 2009Q4

REPORT INFORMATION
  Report Type: 
  Country: None (occurrence: None)
  Receive Date: 20091117
  Receipt Date: 20091105
  Transmission Date: 20100525
  Serious: Yes (Other)
  Sender: FDA-Public Use
  Company Number: FR-PFIZER INC-2006123389

PATIENT
  Age: 61 Year
  Sex: Female
  Weight: 84 kg

DRUGS (6)
  1. EXEMESTANE [Suspect]
     Indication: BREAST CANCER
     Dosage: 25 MG, 1X/DAY
     Route: 048
     Dates: start: 20060405, end: 20060803
  2. COAPROVEL [Concomitant]
     Route: 048
     Dates: start: 20010101
  3. VASTEN [Concomitant]
     Route: 048
     Dates: start: 19990101
  4. KARDEGIC [Concomitant]
     Route: 048
  5. PIASCLEDINE [Concomitant]
     Route: 048
     Dates: start: 19990101
  6. ESBERIVEN [Concomitant]
     Route: 048
     Dates: start: 20060101

REACTIONS (2)
  - CATARACT [None]
  - RETINAL ISCHAEMIA [None]
